FAERS Safety Report 24584855 (Version 3)
Quarter: 2024Q4

REPORT INFORMATION
  Report Type: Spontaneous
  Country: US (occurrence: US)
  Receive Date: 20241106
  Receipt Date: 20241213
  Transmission Date: 20250115
  Serious: Yes (Hospitalization, Other)
  Sender: BRISTOL-MYERS SQUIBB COMPANY
  Company Number: US-BRISTOL-MYERS SQUIBB COMPANY-2024-173282

PATIENT
  Age: 75 Year
  Sex: Male

DRUGS (1)
  1. REVLIMID [Suspect]
     Active Substance: LENALIDOMIDE
     Indication: Diffuse large B-cell lymphoma
     Dosage: FREQUENCY: TAKE 1 CAPSULE BY MOUTH DAILY ON DAYS 1-21 FOLLOWED BY 7 DAYS OFF.
     Route: 048

REACTIONS (3)
  - Pharyngitis [Unknown]
  - Off label use [Unknown]
  - Neoplasm malignant [Unknown]
